FAERS Safety Report 5822246-8 (Version None)
Quarter: 2008Q3

REPORT INFORMATION
  Report Type: 
  Country: None (occurrence: None)
  Receive Date: 20080723
  Receipt Date: 20080723
  Transmission Date: 20090109
  Serious: Yes (Death)
  Sender: FDA-Public Use
  Company Number: None

PATIENT
  Age: 25 Year
  Sex: Female
  Weight: 97.0698 kg

DRUGS (1)
  1. ORTHO-NOVUM [Suspect]
     Indication: ORAL CONTRACEPTION
     Dosage: 7/7/7 28 DAY DAILY PO
     Route: 048

REACTIONS (6)
  - CARDIO-RESPIRATORY ARREST [None]
  - DYSPNOEA [None]
  - DYSPNOEA EXERTIONAL [None]
  - PULMONARY EMBOLISM [None]
  - SYNCOPE [None]
  - TACHYCARDIA [None]
